FAERS Safety Report 7230805-3 (Version None)
Quarter: 2011Q1

REPORT INFORMATION
  Report Type: 
  Country: None (occurrence: None)
  Receive Date: 20110107
  Receipt Date: 20101227
  Transmission Date: 20110831
  Serious: Yes (Hospitalization)
  Sender: FDA-Public Use
  Company Number: 1000017760

PATIENT
  Age: 73 Year
  Sex: Female
  Weight: 60 kg

DRUGS (2)
  1. SELEGILINE [Suspect]
     Indication: PARKINSONISM
     Dosage: 5 MG (5 MG,1 IN 1 D)
  2. ESCITALOPRAM [Suspect]
     Indication: DEPRESSION
     Dosage: 10 MG (10 MG,1 IN 1 D)

REACTIONS (12)
  - CHILLS [None]
  - TREMOR [None]
  - HYPERHIDROSIS [None]
  - ATAXIA [None]
  - SEROTONIN SYNDROME [None]
  - CONFUSIONAL STATE [None]
  - ELECTROCARDIOGRAM ST-T CHANGE [None]
  - CHEST DISCOMFORT [None]
  - ANXIETY [None]
  - MYDRIASIS [None]
  - DRUG INTERACTION [None]
  - AGITATION [None]
